FAERS Safety Report 24078674 (Version 1)
Quarter: 2024Q3

REPORT INFORMATION
  Report Type: Spontaneous
  Country: US (occurrence: US)
  Receive Date: 20240711
  Receipt Date: 20240711
  Transmission Date: 20241017
  Serious: Yes (Death)
  Sender: DOMPE FARMACEUTICI
  Company Number: US-FARMAPROD-202407-2445

PATIENT
  Age: 86 Year
  Sex: Female

DRUGS (1)
  1. OXERVATE [Suspect]
     Active Substance: CENEGERMIN-BKBJ
     Indication: Neurotrophic keratopathy
     Route: 047
     Dates: start: 20240605

REACTIONS (1)
  - Death [Fatal]

NARRATIVE: CASE EVENT DATE: 20240627
